FAERS Safety Report 8554393-4 (Version None)
Quarter: 2012Q3

REPORT INFORMATION
  Report Type: 
  Country: None (occurrence: None)
  Receive Date: 20120731
  Receipt Date: 20120723
  Transmission Date: 20120928
  Serious: Yes (Life-Threatening)
  Sender: FDA-Public Use
  Company Number: US-009507513-1207USA009833

PATIENT

DRUGS (7)
  1. METFORMIN HYDROCHLORIDE [Suspect]
     Dosage: 2000 MG, QD
     Route: 048
  2. ACETYLSALICYLZUUR CARDIO CF [Concomitant]
     Dosage: 80 MG, QD
  3. PERSANTIN [Concomitant]
  4. PERINDOPRIL ERBUMINE [Concomitant]
     Dosage: 2 MG, QD
  5. ACETAMINOPHEN [Concomitant]
  6. PENFILL 50R [Concomitant]
     Dosage: 16 IU, QD
  7. ZOCOR [Suspect]
     Dosage: 40 MG, QD
     Route: 048

REACTIONS (2)
  - NAUSEA [None]
  - JAUNDICE [None]
